FAERS Safety Report 19501349 (Version 1)
Quarter: 2021Q3

REPORT INFORMATION
  Report Type: Spontaneous
  Country: US (occurrence: US)
  Receive Date: 20210707
  Receipt Date: 20210707
  Transmission Date: 20211014
  Serious: Yes (Hospitalization)
  Sender: FDA-Public Use
  Company Number: US-EMCURE PHARMACEUTICALS LTD-2021-EPL-002203

PATIENT
  Age: 46 Year
  Sex: Male

DRUGS (4)
  1. ARIPIPRAZOLE. [Concomitant]
     Active Substance: ARIPIPRAZOLE
  2. ACETAMINOPHEN. [Suspect]
     Active Substance: ACETAMINOPHEN
     Dosage: TAKEN APPROXIMATELY 15 TABS OF A 325 MG FORMULA (ABOUT 4.9 G OF ACETAMINOPHEN) EVERY DAY FOR THE PAS
  3. SERTRALINE [Concomitant]
     Active Substance: SERTRALINE HYDROCHLORIDE
  4. TRAZODONE [Concomitant]
     Active Substance: TRAZODONE HYDROCHLORIDE

REACTIONS (8)
  - Drug-induced liver injury [Unknown]
  - Sepsis [Recovering/Resolving]
  - Suicide attempt [Not Recovered/Not Resolved]
  - Procalcitonin increased [Unknown]
  - Enterocolitis bacterial [Recovered/Resolved]
  - Blood lactic acid increased [Unknown]
  - Intentional overdose [Unknown]
  - Hypertension [Recovering/Resolving]
